FAERS Safety Report 20613247 (Version 2)
Quarter: 2022Q3

REPORT INFORMATION
  Report Type: Spontaneous
  Country: US (occurrence: US)
  Receive Date: 20220318
  Receipt Date: 20220702
  Transmission Date: 20221027
  Serious: Yes (Death, Other)
  Sender: FDA-Public Use
  Company Number: US-SA-SAC20220317001220

PATIENT
  Age: 55 Year
  Sex: Female

DRUGS (1)
  1. ZANTAC [Suspect]
     Active Substance: RANITIDINE HYDROCHLORIDE
     Indication: Gastrooesophageal reflux disease
     Dosage: UNK UNK, QD
     Route: 065
     Dates: start: 200601, end: 201001

REACTIONS (1)
  - Pancreatic carcinoma stage IV [Fatal]

NARRATIVE: CASE EVENT DATE: 20091001
